FAERS Safety Report 7722449-1 (Version None)
Quarter: 2011Q3

REPORT INFORMATION
  Report Type: 
  Country: None (occurrence: None)
  Receive Date: 20110831
  Receipt Date: 20110829
  Transmission Date: 20111222
  Serious: Yes (Hospitalization, Other)
  Sender: FDA-Public Use
  Company Number: US-BAYER-2011-079072

PATIENT
  Age: 51 Year
  Sex: Female

DRUGS (3)
  1. VICODIN [Concomitant]
     Indication: PAIN
  2. AVELOX [Suspect]
     Dosage: UNK
     Route: 048
     Dates: start: 20110501, end: 20110501
  3. CORTICOSTEROIDS [Concomitant]

REACTIONS (4)
  - ARTHRALGIA [None]
  - HYPERSENSITIVITY [None]
  - LIGAMENT RUPTURE [None]
  - THROAT TIGHTNESS [None]
